FAERS Safety Report 7057211-9 (Version None)
Quarter: 2010Q4

REPORT INFORMATION
  Report Type: 
  Country: None (occurrence: None)
  Receive Date: 20101022
  Receipt Date: 20101011
  Transmission Date: 20110411
  Serious: Yes (Hospitalization)
  Sender: FDA-Public Use
  Company Number: PHHY2010FR30347

PATIENT
  Sex: Male

DRUGS (11)
  1. TEGRETOL [Suspect]
     Dosage: 5 ML, TID
  2. SABRIL [Suspect]
     Dosage: 500 MG 02 DF DAILY
     Dates: start: 20091101
  3. GARDENAL [Suspect]
     Dosage: 80 MG, DAILY
     Dates: start: 20100101
  4. GARDENAL [Suspect]
     Dosage: 90 MG, DAILY
     Dates: start: 20100301
  5. GARDENAL [Suspect]
     Dosage: 60 MG DAILY
  6. ROCEPHIN [Concomitant]
     Indication: URINARY TRACT INFECTION
     Dosage: UNK
  7. AMIKIN [Concomitant]
     Indication: URINARY TRACT INFECTION
     Dosage: UNK
  8. CEFIXIME CHEWABLE [Concomitant]
     Indication: URINARY TRACT INFECTION
     Dosage: UNK
  9. URSO FALK [Concomitant]
     Dosage: UNK
  10. RIFADIN [Concomitant]
     Dosage: UNK
  11. ZYRTEC [Concomitant]
     Dosage: UNK

REACTIONS (4)
  - DERMATITIS BULLOUS [None]
  - PHOTOSENSITIVITY REACTION [None]
  - PSEUDOPORPHYRIA [None]
  - URINARY TRACT INFECTION [None]
